FAERS Safety Report 25462569 (Version 1)
Quarter: 2025Q2

REPORT INFORMATION
  Report Type: Spontaneous
  Country: RU (occurrence: RU)
  Receive Date: 20250620
  Receipt Date: 20250620
  Transmission Date: 20250717
  Serious: Yes (Other)
  Sender: NOVARTIS
  Company Number: RU-002147023-NVSC2025RU096152

PATIENT
  Age: 17 Year
  Sex: Female

DRUGS (1)
  1. TRILEPTAL [Suspect]
     Active Substance: OXCARBAZEPINE
     Indication: Product used for unknown indication
     Dosage: 450 MG, BID
     Route: 048
     Dates: start: 202008, end: 202506

REACTIONS (1)
  - Anorexia nervosa [Recovering/Resolving]

NARRATIVE: CASE EVENT DATE: 20210201
